FAERS Safety Report 4491302-1 (Version None)
Quarter: 2004Q4

REPORT INFORMATION
  Report Type: 
  Country: None (occurrence: None)
  Receive Date: 20041101
  Receipt Date: 20041101
  Transmission Date: 20050328
  Serious: Yes (Other)
  Sender: FDA-Public Use
  Company Number: None

PATIENT
  Age: 51 Year
  Sex: Female
  Weight: 124.7392 kg

DRUGS (3)
  1. ZOLOFT [Suspect]
     Indication: GENERALISED ANXIETY DISORDER
     Dosage: 150 MG   H/S   PARENTERAL
     Route: 051
     Dates: start: 20020810, end: 20041029
  2. ZOLOFT [Suspect]
     Indication: MAJOR DEPRESSION
     Dosage: 150 MG   H/S   PARENTERAL
     Route: 051
     Dates: start: 20020810, end: 20041029
  3. TRAZODONE HCL [Concomitant]

REACTIONS (4)
  - ASTHENIA [None]
  - FEELING ABNORMAL [None]
  - HEADACHE [None]
  - MALAISE [None]
